FAERS Safety Report 9547404 (Version 1)
Quarter: 2013Q3

REPORT INFORMATION
  Report Type: Spontaneous
  Country: CA (occurrence: CA)
  Receive Date: 20130924
  Receipt Date: 20130924
  Transmission Date: 20140515
  Serious: Yes (Other)
  Sender: FDA-Public Use
  Company Number: PHHY2013CA103958

PATIENT
  Age: 64 Year
  Sex: Male

DRUGS (1)
  1. CIPROFLOXACIN [Suspect]
     Indication: URINARY TRACT INFECTION
     Dosage: 500 MG, BID
     Route: 048
     Dates: start: 20130912

REACTIONS (4)
  - Urinary tract obstruction [Recovered/Resolved]
  - Penile pain [Recovered/Resolved]
  - Sensation of foreign body [Recovered/Resolved]
  - Blood urine present [Recovered/Resolved]
